FAERS Safety Report 4281810-0 (Version None)
Quarter: 2004Q1

REPORT INFORMATION
  Report Type: 
  Country: None (occurrence: None)
  Receive Date: 20040128
  Receipt Date: 20040122
  Transmission Date: 20041129
  Serious: Yes (Other)
  Sender: FDA-Public Use
  Company Number: 000#8#2004-00035

PATIENT
  Sex: Male

DRUGS (1)
  1. GLYCERYL TRINITRATE (DOSE UNKNOWN), UNKNOWN (GLYCERYL TRINITRATE) [Suspect]
     Dosage: 1.0.4 MG AT 2, 4, 8, AND 24 H POST-PLACEBO
     Route: 060

REACTIONS (1)
  - SINUS ARREST [None]
